FAERS Safety Report 6779672-2 (Version None)
Quarter: 2010Q2

REPORT INFORMATION
  Report Type: 
  Country: None (occurrence: None)
  Receive Date: 20100618
  Receipt Date: 20100607
  Transmission Date: 20101027
  Serious: Yes (Hospitalization)
  Sender: FDA-Public Use
  Company Number: US-JNJFOC-20100403092

PATIENT
  Sex: Female
  Weight: 47.63 kg

DRUGS (10)
  1. REMICADE [Suspect]
     Indication: COLITIS ULCERATIVE
     Dosage: DOSE ALSO REPORTED AS 5 MG/KG
     Route: 042
  2. PREDNISONE [Concomitant]
     Indication: COLITIS ULCERATIVE
     Dosage: ON THERAPY FOR ONE YEAR
  3. LIALDA [Concomitant]
     Indication: COLITIS ULCERATIVE
     Dosage: TAKING FOR 9 MONTHS
  4. PROCTOSONE [Concomitant]
  5. FLORASTOR [Concomitant]
  6. NEXIUM [Concomitant]
  7. METHADONE [Concomitant]
  8. MYCOSTATIN [Concomitant]
     Route: 048
  9. PROCTOFOAM [Concomitant]
  10. HYDROCODONE [Concomitant]

REACTIONS (10)
  - CYTOMEGALOVIRUS COLITIS [None]
  - DECREASED APPETITE [None]
  - MALAISE [None]
  - MEGACOLON [None]
  - PANCREATITIS [None]
  - PRESYNCOPE [None]
  - PULMONARY EMBOLISM [None]
  - SEPSIS [None]
  - THROMBOSIS [None]
  - WEIGHT DECREASED [None]
